FAERS Safety Report 7859144 (Version 2)
Quarter: 2013Q2

REPORT INFORMATION
  Report Type: Report from Study
  Country: MX (occurrence: MX)
  Receive Date: 20110316
  Receipt Date: 20130528
  Transmission Date: 20140414
  Serious: Yes (Hospitalization)
  Sender: FDA-Public Use
  Company Number: PHHY2011MX17810

PATIENT
  Age: 77 Year
  Sex: Female

DRUGS (1)
  1. DIOVAN [Suspect]
     Indication: HYPERTENSION
     Dosage: 2 DF (160MG), DAILY
     Route: 048
     Dates: start: 19970303, end: 20110122

REACTIONS (2)
  - Cerebrovascular accident [Recovered/Resolved with Sequelae]
  - Cerebral haemorrhage [Not Recovered/Not Resolved]
